FAERS Safety Report 24096977 (Version 1)
Quarter: 2024Q3

REPORT INFORMATION
  Report Type: Spontaneous
  Country: US (occurrence: US)
  Receive Date: 20240716
  Receipt Date: 20240716
  Transmission Date: 20241016
  Serious: No
  Sender: GRIFOLS
  Company Number: US-IGSA-BIG0028067

PATIENT
  Age: 13 Year
  Sex: Male
  Weight: 48.526 kg

DRUGS (2)
  1. GAMUNEX-C [Suspect]
     Active Substance: HUMAN IMMUNOGLOBULIN G
     Indication: Product used for unknown indication
     Dosage: 50 GRAM, TOTAL
     Route: 042
     Dates: start: 20240320, end: 20240320
  2. GAMUNEX-C [Suspect]
     Active Substance: HUMAN IMMUNOGLOBULIN G
     Dosage: 100 GRAM, Q.4WK.
     Route: 042

REACTIONS (3)
  - Pain [Unknown]
  - Burning sensation [Unknown]
  - Crying [Unknown]

NARRATIVE: CASE EVENT DATE: 20240215
